FAERS Safety Report 17540788 (Version 1)
Quarter: 2020Q1

REPORT INFORMATION
  Report Type: Spontaneous
  Country: US (occurrence: US)
  Receive Date: 20200313
  Receipt Date: 20200313
  Transmission Date: 20200409
  Serious: No
  Sender: FDA-Public Use
  Company Number: US-BAUSCH-BL-2020-007199

PATIENT
  Age: 61 Year
  Sex: Male
  Weight: 99.88 kg

DRUGS (3)
  1. TARGRETIN [Suspect]
     Active Substance: BEXAROTENE
     Dosage: 4 CAPSULES ONCE DAILY WITH A MEAL IN THE EVENING
     Route: 048
     Dates: start: 20200214, end: 202002
  2. TARGRETIN [Suspect]
     Active Substance: BEXAROTENE
     Dosage: SPACED OUT THE DOSE OF 4 CAPSULES THROUGHOUT THE DAY
     Route: 048
     Dates: start: 202002
  3. TARGRETIN [Suspect]
     Active Substance: BEXAROTENE
     Indication: NEOPLASM MALIGNANT
     Dosage: TITRATED DOSE
     Route: 048
     Dates: start: 20200206, end: 202002

REACTIONS (1)
  - Headache [Not Recovered/Not Resolved]

NARRATIVE: CASE EVENT DATE: 202002
